FAERS Safety Report 10745263 (Version 1)
Quarter: 2015Q1

REPORT INFORMATION
  Report Type: Spontaneous
  Country: US (occurrence: None)
  Receive Date: 20150120
  Receipt Date: 20150120
  Transmission Date: 20150721
  Serious: No
  Sender: FDA-Public Use
  Company Number: AEGR000918

PATIENT
  Age: 67 Year
  Sex: Female
  Weight: 75.7 kg

DRUGS (2)
  1. CRESTOR [Suspect]
     Active Substance: ROSUVASTATIN CALCIUM
  2. JUXTAPID [Suspect]
     Active Substance: LOMITAPIDE MESYLATE
     Indication: TYPE IIA HYPERLIPIDAEMIA
     Route: 048
     Dates: start: 20140910, end: 201411

REACTIONS (5)
  - Diarrhoea [None]
  - Therapy cessation [None]
  - Gastroenteritis viral [None]
  - Vomiting [None]
  - Dizziness [None]

NARRATIVE: CASE EVENT DATE: 20141112
